FAERS Safety Report 4639890-6 (Version None)
Quarter: 2005Q2

REPORT INFORMATION
  Report Type: 
  Country: None (occurrence: None)
  Receive Date: 20050420
  Receipt Date: 20010403
  Transmission Date: 20051028
  Serious: Yes (Life-Threatening, Disabling, Other)
  Sender: FDA-Public Use
  Company Number: PHRM2001FR01007

PATIENT
  Age: 1 Day
  Sex: Male
  Weight: 4 kg

DRUGS (2)
  1. HYDERGINE [Suspect]
     Route: 064
  2. SYNTOCINON [Concomitant]
     Route: 064

REACTIONS (22)
  - ANOXIC ENCEPHALOPATHY [None]
  - APGAR SCORE LOW [None]
  - BRADYCARDIA FOETAL [None]
  - CEREBRAL ATROPHY [None]
  - CEREBRAL HAEMORRHAGE FOETAL [None]
  - COGNITIVE DISORDER [None]
  - CONVULSION NEONATAL [None]
  - DEVELOPMENTAL COORDINATION DISORDER [None]
  - DEVELOPMENTAL DELAY [None]
  - DRUG EXPOSURE DURING PREGNANCY [None]
  - ELECTROENCEPHALOGRAM ABNORMAL [None]
  - EPILEPSY [None]
  - FOETAL DISTRESS SYNDROME [None]
  - HYPERTONIA [None]
  - HYPOTONIA [None]
  - INFANTILE SPASMS [None]
  - INTUBATION [None]
  - LIFE SUPPORT [None]
  - NEONATAL ANOXIA [None]
  - NEONATAL RESPIRATORY ARREST [None]
  - NERVOUS SYSTEM DISORDER [None]
  - REFLEXES ABNORMAL [None]
